FAERS Safety Report 8075235-X (Version None)
Quarter: 2012Q1

REPORT INFORMATION
  Report Type: 
  Country: None (occurrence: None)
  Receive Date: 20120127
  Receipt Date: 20120118
  Transmission Date: 20120608
  Serious: Yes (Other)
  Sender: FDA-Public Use
  Company Number: US-JNJFOC-20120107479

PATIENT
  Age: 57 Year
  Sex: Female

DRUGS (2)
  1. OXYCODONE HCL AND ACETAMINOPHEN [Concomitant]
  2. XARELTO [Suspect]
     Indication: HIP ARTHROPLASTY
     Route: 065

REACTIONS (1)
  - DEEP VEIN THROMBOSIS [None]
